FAERS Safety Report 10329018 (Version 1)
Quarter: 2014Q3

REPORT INFORMATION
  Report Type: Spontaneous
  Country: US (occurrence: None)
  Receive Date: 20140718
  Receipt Date: 20140718
  Transmission Date: 20150326
  Serious: Yes (Hospitalization)
  Sender: FDA-Public Use
  Company Number: None

PATIENT
  Age: 78 Year
  Sex: Female
  Weight: 83 kg

DRUGS (1)
  1. XARELTO [Suspect]
     Active Substance: RIVAROXABAN
     Dosage: XARELTO 15MG QD ORAL
     Route: 048

REACTIONS (4)
  - Haemoglobin decreased [None]
  - Haematocrit decreased [None]
  - Rectal haemorrhage [None]
  - Tachycardia [None]

NARRATIVE: CASE EVENT DATE: 20140526
